FAERS Safety Report 26028429 (Version 2)
Quarter: 2025Q4

REPORT INFORMATION
  Report Type: Spontaneous
  Country: CN (occurrence: CN)
  Receive Date: 20251111
  Receipt Date: 20251120
  Transmission Date: 20260117
  Serious: Yes (Other)
  Sender: NOVO NORDISK
  Company Number: CN-NOVOPROD-1556529

PATIENT
  Sex: Female

DRUGS (1)
  1. NOVORAPID [Suspect]
     Active Substance: INSULIN ASPART
     Indication: Type 2 diabetes mellitus
     Dosage: 90 IU, QD (30 UNITS EACH IN THE MORNING, NOON, AND EVENING) PRODUCT USED FOR 15 YEARS

REACTIONS (3)
  - Presbyopia [Unknown]
  - Cataract [Unknown]
  - Vitreous floaters [Unknown]
